FAERS Safety Report 13497316 (Version 2)
Quarter: 2017Q2

REPORT INFORMATION
  Report Type: Report from Study
  Country: IT (occurrence: IT)
  Receive Date: 20170428
  Receipt Date: 20170530
  Transmission Date: 20170830
  Serious: Yes (Other)
  Sender: FDA-Public Use
  Company Number: IT-MYLANLABS-2017M1025529

PATIENT

DRUGS (1)
  1. IBUPROFEN. [Suspect]
     Active Substance: IBUPROFEN
     Indication: INFLAMMATION
     Dosage: 1 DF, TOTAL
     Route: 048
     Dates: start: 20170328, end: 20170328

REACTIONS (3)
  - Hypersensitivity [Unknown]
  - Erythema [Unknown]
  - Medication error [Unknown]

NARRATIVE: CASE EVENT DATE: 20170328
